FAERS Safety Report 25971452 (Version 1)
Quarter: 2025Q4

REPORT INFORMATION
  Report Type: Spontaneous
  Country: US (occurrence: US)
  Receive Date: 20251028
  Receipt Date: 20251028
  Transmission Date: 20260117
  Serious: No
  Sender: ROCHE
  Company Number: US-ROCHE-10000419791

PATIENT
  Age: 45 Year
  Sex: Female
  Weight: 97.52 kg

DRUGS (4)
  1. PHESGO [Suspect]
     Active Substance: HYALURONIDASE-ZZXF\PERTUZUMAB\TRASTUZUMAB
     Indication: Hormone receptor negative HER2 positive breast cancer
     Dosage: INITIAL LOADING DOSE
     Route: 058
     Dates: start: 20251003, end: 20251003
  2. PHESGO [Suspect]
     Active Substance: HYALURONIDASE-ZZXF\PERTUZUMAB\TRASTUZUMAB
     Dosage: WRONG ADMINISTRATION DOSE
     Route: 042
     Dates: start: 20251024, end: 20251024
  3. DEXAMETHASONE [Concomitant]
     Active Substance: DEXAMETHASONE
     Dosage: 10 MG
  4. PALONOSETRON [Concomitant]
     Active Substance: PALONOSETRON
     Dosage: 0.25 MG VIA INTRAVENOUS PUSH (IVP) AT PATIENTS CENTRAL PORT

REACTIONS (2)
  - Incorrect route of product administration [Unknown]
  - No adverse event [Unknown]

NARRATIVE: CASE EVENT DATE: 20251024
